FAERS Safety Report 16952120 (Version 1)
Quarter: 2019Q4

REPORT INFORMATION
  Report Type: Spontaneous
  Country: US (occurrence: US)
  Receive Date: 20191023
  Receipt Date: 20191023
  Transmission Date: 20200122
  Serious: No
  Sender: FDA-Public Use
  Company Number: US-ANTARES PHARMA, INC.-2019-SPO-TX-0020

PATIENT
  Sex: Female

DRUGS (1)
  1. XYOSTED [Suspect]
     Active Substance: TESTOSTERONE ENANTHATE
     Indication: ACCIDENTAL EXPOSURE TO PRODUCT
     Dosage: UNK, UNKNOWN
     Route: 065

REACTIONS (1)
  - Accidental exposure to product [Recovered/Resolved]
